FAERS Safety Report 7289985-6 (Version None)
Quarter: 2011Q1

REPORT INFORMATION
  Report Type: 
  Country: None (occurrence: None)
  Receive Date: 20110214
  Receipt Date: 20110202
  Transmission Date: 20110831
  Serious: Yes (Hospitalization)
  Sender: FDA-Public Use
  Company Number: BR-ELI_LILLY_AND_COMPANY-BR201101004557

PATIENT
  Sex: Female
  Weight: 45 kg

DRUGS (4)
  1. MULTIVITAMIN [Concomitant]
     Dosage: UNK, UNKNOWN
     Route: 065
  2. PROLOPA [Concomitant]
     Dosage: UNK, UNKNOWN
     Route: 065
  3. SOMALGIN [Concomitant]
     Dosage: UNK, UNKNOWN
     Route: 065
  4. FORTEO [Suspect]
     Indication: OSTEOPOROSIS
     Dosage: UNK, DAILY (1/D)
     Route: 065
     Dates: start: 20090101

REACTIONS (1)
  - BRONCHITIS CHRONIC [None]
